FAERS Safety Report 5937842-7 (Version None)
Quarter: 2008Q4

REPORT INFORMATION
  Report Type: 
  Country: None (occurrence: None)
  Receive Date: 20081029
  Receipt Date: 20081015
  Transmission Date: 20090506
  Serious: Yes (Death)
  Sender: FDA-Public Use
  Company Number: ADE08006-L

PATIENT

DRUGS (5)
  1. NEORAL [Suspect]
     Indication: IMMUNOSUPPRESSION
     Dosage: 10MG/KG/D, THEN ADJUSTED
  2. EC-MYCOPHENOLATE SODIUM (EC-MPS) [Concomitant]
  3. BASILIXIMAB [Concomitant]
  4. I.V. METHYLPREDNISOLONE [Concomitant]
  5. ORAL PREDNISOLONE [Concomitant]

REACTIONS (1)
  - DEATH [None]
